FAERS Safety Report 18756590 (Version 1)
Quarter: 2021Q1

REPORT INFORMATION
  Report Type: Spontaneous
  Country: US (occurrence: US)
  Receive Date: 20210118
  Receipt Date: 20210118
  Transmission Date: 20210419
  Serious: Yes (Other)
  Sender: FDA-Public Use
  Company Number: None

PATIENT
  Age: 68 Year
  Sex: Female

DRUGS (1)
  1. COSENTYX [Suspect]
     Active Substance: SECUKINUMAB
     Dates: start: 20201020, end: 20210106

REACTIONS (6)
  - Diarrhoea [None]
  - White blood cell count increased [None]
  - Megacolon [None]
  - Body temperature increased [None]
  - Therapy cessation [None]
  - Gallbladder disorder [None]

NARRATIVE: CASE EVENT DATE: 20210118
